FAERS Safety Report 8942471 (Version 1)
Quarter: 2012Q4

REPORT INFORMATION
  Report Type: 
  Country: US (occurrence: US)
  Receive Date: 20121121
  Receipt Date: 20121121
  Transmission Date: 20130627
  Serious: Yes (Death)
  Sender: FDA-Public Use
  Company Number: US-ASTELLAS-1107073

PATIENT
  Sex: Male

DRUGS (2)
  1. TARCEVA [Suspect]
     Indication: LUNG NEOPLASM MALIGNANT
     Route: 065
     Dates: start: 200710, end: 200811
  2. TARCEVA [Suspect]
     Indication: BRONCHIAL CARCINOMA

REACTIONS (2)
  - Disease progression [Fatal]
  - Gastrointestinal toxicity [Unknown]
